FAERS Safety Report 5201310-0 (Version None)
Quarter: 2007Q1

REPORT INFORMATION
  Report Type: 
  Country: None (occurrence: None)
  Receive Date: 20070104
  Receipt Date: 20061228
  Transmission Date: 20070707
  Serious: Yes (Life-Threatening, Hospitalization, Other)
  Sender: FDA-Public Use
  Company Number: 163-21880-06040327

PATIENT
  Age: 59 Year
  Sex: Female

DRUGS (3)
  1. REVLIMID [Suspect]
     Indication: MYELODYSPLASTIC SYNDROME
     Dosage: 10 MG, 1 IN 1 D, ORAL
     Route: 048
     Dates: start: 20060323, end: 20060412
  2. DIFLUCAN [Concomitant]
  3. LEVOFLOXACIN [Concomitant]

REACTIONS (7)
  - BRONCHOPULMONARY ASPERGILLOSIS [None]
  - HAEMOGLOBIN DECREASED [None]
  - LYMPHOCYTE COUNT DECREASED [None]
  - NEUTROPENIA [None]
  - PRURITUS [None]
  - RASH [None]
  - THROMBOCYTOPENIA [None]
